FAERS Safety Report 6537104-3 (Version None)
Quarter: 2010Q1

REPORT INFORMATION
  Report Type: 
  Country: None (occurrence: None)
  Receive Date: 20100114
  Receipt Date: 20100107
  Transmission Date: 20100710
  Serious: Yes (Hospitalization)
  Sender: FDA-Public Use
  Company Number: JP-BAYER-201010116BYL

PATIENT
  Age: 84 Year
  Sex: Male
  Weight: 52 kg

DRUGS (11)
  1. NEXAVAR [Suspect]
     Indication: HEPATIC NEOPLASM MALIGNANT
     Dosage: TOTAL DAILY DOSE: 400 MG  UNIT DOSE: 200 MG
     Route: 048
     Dates: start: 20090730, end: 20091228
  2. CINALONG [Concomitant]
     Dosage: SINCE BEFORE ADMINISTRATION
     Route: 048
  3. DIOVAN [Concomitant]
     Dosage: SINCE BEFORE ADMINISTRATION
     Route: 048
  4. NAIXAN [Concomitant]
     Dosage: SINCE BEFORE ADMINISTRATION
     Route: 048
  5. MUCOSTA [Concomitant]
     Dosage: SINCE BEFORE ADMINISTRATION
     Route: 048
  6. LIVACT [Concomitant]
     Dosage: SINCE BEFORE ADMINISTRATION
     Route: 048
  7. PRORENAL [Concomitant]
     Dosage: SINCE BEFORE ADMINISTRATION
     Route: 048
  8. ASPIRIN [Concomitant]
     Dosage: UNIT DOSE: 100 MG
     Route: 048
  9. RABEPRAZOLE SODIUM [Concomitant]
     Dosage: SINCE BEFORE ADMINISTRATION
     Route: 048
  10. FERROMIA [Concomitant]
     Dosage: SINCE BEFORE ADMINISTRATION
     Route: 048
  11. AMOBAN [Concomitant]
     Dosage: SINCE BEFORE ADMINISTRATION
     Route: 048

REACTIONS (3)
  - DIARRHOEA [None]
  - ENTEROCOLITIS [None]
  - TRANSAMINASES INCREASED [None]
